FAERS Safety Report 6382791-6 (Version None)
Quarter: 2009Q3

REPORT INFORMATION
  Report Type: 
  Country: None (occurrence: None)
  Receive Date: 20090930
  Receipt Date: 20090923
  Transmission Date: 20100115
  Serious: Yes (Other)
  Sender: FDA-Public Use
  Company Number: GB-JNJCH-2009024672

PATIENT
  Sex: Male

DRUGS (2)
  1. COOL MINT LISTERINE [Suspect]
     Indication: DENTAL DISORDER PROPHYLAXIS
     Route: 048
     Dates: start: 20090803, end: 20090918
  2. OMEPRAZOLE [Concomitant]
     Indication: DYSPEPSIA
     Dosage: TEXT:UNSPECIFIED
     Route: 065

REACTIONS (6)
  - APPLICATION SITE BURN [None]
  - BLISTER [None]
  - ORAL DISCOMFORT [None]
  - ORAL PAIN [None]
  - PRODUCT QUALITY ISSUE [None]
  - STOMATITIS [None]
